FAERS Safety Report 16854937 (Version 3)
Quarter: 2019Q4

REPORT INFORMATION
  Report Type: Spontaneous
  Country: JP (occurrence: JP)
  Receive Date: 20190926
  Receipt Date: 20191015
  Transmission Date: 20200122
  Serious: Yes (Other)
  Sender: FDA-Public Use
  Company Number: JP-UCBSA-2019040770

PATIENT
  Age: 10 Month
  Sex: Male

DRUGS (7)
  1. MEPTIN [Concomitant]
     Active Substance: PROCATEROL HYDROCHLORIDE
     Indication: RESPIRATORY SYNCYTIAL VIRUS INFECTION
     Dosage: 0.1 G, TID
     Dates: start: 20190915, end: 20190915
  2. CARBOCISTEINE [Concomitant]
     Active Substance: CARBOCYSTEINE
     Indication: RESPIRATORY SYNCYTIAL VIRUS INFECTION
     Dosage: 0.2 G, TID
     Dates: start: 20190915, end: 20190915
  3. ASVERIN (TIPEPIDINE HIBENZATE) [Concomitant]
     Active Substance: TIPEPIDINE HIBENZATE
     Indication: RESPIRATORY SYNCYTIAL VIRUS INFECTION
     Dosage: 0.1 G, TID
     Dates: start: 20190915, end: 20190915
  4. XYZAL [Suspect]
     Active Substance: LEVOCETIRIZINE DIHYDROCHLORIDE
     Indication: RESPIRATORY SYNCYTIAL VIRUS INFECTION
  5. XYZAL [Suspect]
     Active Substance: LEVOCETIRIZINE DIHYDROCHLORIDE
     Indication: OFF LABEL USE
  6. ANHIBA [Concomitant]
     Active Substance: ACETAMINOPHEN
     Indication: RESPIRATORY SYNCYTIAL VIRUS INFECTION
     Dosage: UNK
  7. XYZAL [Suspect]
     Active Substance: LEVOCETIRIZINE DIHYDROCHLORIDE
     Indication: CUTANEOUS SYMPTOM
     Dosage: 2.5 MILLILITER, 2X/DAY (BID)
     Route: 048
     Dates: start: 20190915, end: 20190915

REACTIONS (7)
  - Contusion [Unknown]
  - Hallucination [Recovered/Resolved]
  - Prescribed overdose [Unknown]
  - Product prescribing error [Unknown]
  - Intentional self-injury [Recovered/Resolved]
  - Off label use [Unknown]
  - Product dispensing error [Unknown]

NARRATIVE: CASE EVENT DATE: 201909
